FAERS Safety Report 8912062 (Version 1)
Quarter: 2012Q4

REPORT INFORMATION
  Report Type: 
  Country: FR (occurrence: FR)
  Receive Date: 20121116
  Receipt Date: 20121116
  Transmission Date: 20130627
  Serious: Yes (Hospitalization)
  Sender: FDA-Public Use
  Company Number: FR-ROCHE-1154660

PATIENT
  Age: 85 Year
  Sex: Female

DRUGS (12)
  1. MABTHERA [Suspect]
     Indication: FACTOR VIII DEFICIENCY
     Route: 042
     Dates: start: 20120810, end: 20120824
  2. ARICEPT [Concomitant]
     Route: 048
  3. AMLOR [Concomitant]
     Route: 048
  4. CORTANCYL [Concomitant]
     Route: 048
     Dates: start: 201208
  5. CORTANCYL [Concomitant]
     Route: 065
     Dates: start: 20120806, end: 20120806
  6. FEIBA [Concomitant]
     Route: 042
     Dates: start: 20120806, end: 20120810
  7. METHOTREXATE [Concomitant]
     Indication: BREAST CANCER IN SITU
     Route: 048
     Dates: start: 201205, end: 201208
  8. ACTONEL [Concomitant]
     Route: 048
     Dates: start: 201208
  9. CACIT VITAMINE D3 [Concomitant]
     Dosage: 1000 mg/880 IU
     Route: 048
     Dates: start: 201208
  10. INEXIUM [Concomitant]
     Route: 048
     Dates: start: 201208
  11. FEMARA [Concomitant]
     Route: 065
     Dates: start: 2010
  12. TRIATEC [Concomitant]
     Route: 065

REACTIONS (1)
  - Agranulocytosis [Recovered/Resolved]
